FAERS Safety Report 6379803-2 (Version None)
Quarter: 2009Q3

REPORT INFORMATION
  Report Type: 
  Country: None (occurrence: None)
  Receive Date: 20090928
  Receipt Date: 20090918
  Transmission Date: 20100115
  Serious: Yes (Other)
  Sender: FDA-Public Use
  Company Number: US-WYE-H11080509

PATIENT
  Sex: Male

DRUGS (4)
  1. TYGACIL [Suspect]
     Indication: ABDOMINAL ABSCESS
     Dosage: UNKNOWN
     Route: 065
     Dates: start: 20090823
  2. TYGACIL [Suspect]
     Dosage: UNKNOWN
     Route: 013
     Dates: start: 20090831, end: 20090831
  3. TYGACIL [Suspect]
     Dosage: UNKNOWN
     Route: 042
     Dates: start: 20090901
  4. MOXIFLOXACIN HCL [Suspect]
     Indication: ABDOMINAL ABSCESS
     Dosage: DOSE AND DATES OF THERAPY NOT SPECIDIED
     Route: 013

REACTIONS (3)
  - CEREBRAL INFARCTION [None]
  - CONVULSION [None]
  - INCORRECT ROUTE OF DRUG ADMINISTRATION [None]
